FAERS Safety Report 18872451 (Version 2)
Quarter: 2021Q2

REPORT INFORMATION
  Report Type: Spontaneous
  Country: US (occurrence: US)
  Receive Date: 20210210
  Receipt Date: 20210517
  Transmission Date: 20210717
  Serious: Yes (Other)
  Sender: FDA-Public Use
  Company Number: US-GLAXOSMITHKLINE-US2021GSK035134

PATIENT
  Sex: Female

DRUGS (20)
  1. ZANTAC [Suspect]
     Active Substance: RANITIDINE HYDROCHLORIDE
     Indication: DYSPEPSIA
     Dosage: 75 MG OVER THE COUNTER
     Route: 065
     Dates: start: 199001, end: 201508
  2. RANITIDINE. [Suspect]
     Active Substance: RANITIDINE
     Dosage: 75 MG OVER THE COUNTER
     Route: 065
     Dates: start: 199001, end: 201508
  3. RANITIDINE. [Suspect]
     Active Substance: RANITIDINE
     Dosage: 150 MG OVER THE COUNTER
     Route: 065
     Dates: start: 199001, end: 201508
  4. RANITIDINE CAPSULE [Suspect]
     Active Substance: RANITIDINE
     Dosage: 150 MG OVER THE COUNTER
     Route: 065
     Dates: start: 199001, end: 201508
  5. RANITIDINE. [Suspect]
     Active Substance: RANITIDINE
     Indication: DYSPEPSIA
     Dosage: 75 MG OVER THE COUNTER
     Route: 065
     Dates: start: 199001, end: 201508
  6. RANITIDINE. [Suspect]
     Active Substance: RANITIDINE
     Dosage: 300 MG, QD
     Route: 065
     Dates: start: 199001, end: 201508
  7. ZANTAC [Suspect]
     Active Substance: RANITIDINE HYDROCHLORIDE
     Dosage: 75 MG OVER THE COUNTER
     Route: 065
     Dates: start: 199001, end: 201508
  8. ZANTAC [Suspect]
     Active Substance: RANITIDINE HYDROCHLORIDE
     Dosage: UNK
  9. ZANTAC [Suspect]
     Active Substance: RANITIDINE HYDROCHLORIDE
     Dosage: 150 MG OVER THE COUNTER
     Route: 065
     Dates: start: 199001, end: 201508
  10. ZANTAC [Suspect]
     Active Substance: RANITIDINE HYDROCHLORIDE
     Dosage: 75 MG OVER THE COUNTER
     Route: 065
     Dates: start: 199001, end: 201508
  11. ZANTAC [Suspect]
     Active Substance: RANITIDINE HYDROCHLORIDE
     Dosage: 150 MG OVER THE COUNTER
     Route: 065
     Dates: start: 199001, end: 201508
  12. ZANTAC [Suspect]
     Active Substance: RANITIDINE HYDROCHLORIDE
     Dosage: 300 MG, QD
     Route: 065
     Dates: start: 199001, end: 201508
  13. RANITIDINE. [Suspect]
     Active Substance: RANITIDINE
     Dosage: 150 MG OVER THE COUNTER
     Route: 065
     Dates: start: 199001, end: 201508
  14. RANITIDINE CAPSULE [Suspect]
     Active Substance: RANITIDINE
     Indication: DYSPEPSIA
     Dosage: 75 MG OVER THE COUNTER
     Route: 065
     Dates: start: 199001, end: 201508
  15. RANITIDINE CAPSULE [Suspect]
     Active Substance: RANITIDINE
     Dosage: 150 MG OVER THE COUNTER
     Route: 065
     Dates: start: 199001, end: 201508
  16. RANITIDINE CAPSULE [Suspect]
     Active Substance: RANITIDINE
     Dosage: 300 MG, QD
     Route: 065
     Dates: start: 199001, end: 201508
  17. ZANTAC [Suspect]
     Active Substance: RANITIDINE HYDROCHLORIDE
     Indication: DYSPEPSIA
     Dosage: 150 MG OVER THE COUNTER
     Route: 065
     Dates: start: 199001, end: 201508
  18. ZANTAC [Suspect]
     Active Substance: RANITIDINE HYDROCHLORIDE
     Dosage: 150 MG OVER THE COUNTER
     Route: 065
     Dates: start: 199001, end: 201508
  19. ZANTAC [Suspect]
     Active Substance: RANITIDINE HYDROCHLORIDE
     Dosage: 300 MG, QD
     Route: 065
     Dates: start: 199001, end: 201508
  20. RANITIDINE CAPSULE [Suspect]
     Active Substance: RANITIDINE
     Dosage: 75 MG OVER THE COUNTER
     Route: 065
     Dates: start: 199001, end: 201508

REACTIONS (3)
  - Gastrointestinal carcinoma [Unknown]
  - Uterine cancer [Unknown]
  - Renal cancer [Unknown]
